FAERS Safety Report 8936847 (Version 1)
Quarter: 2012Q4

REPORT INFORMATION
  Report Type: 
  Country: US (occurrence: US)
  Receive Date: 20121130
  Receipt Date: 20121130
  Transmission Date: 20130627
  Serious: No
  Sender: FDA-Public Use
  Company Number: US-BAYER-2012-119326

PATIENT
  Age: 51 Year
  Sex: Male

DRUGS (3)
  1. STAXYN (FDT/ODT) [Suspect]
     Dosage: UNK
     Route: 048
     Dates: start: 201210, end: 20121106
  2. MUCINEX DM [Concomitant]
  3. ZITHROMAX [Concomitant]

REACTIONS (3)
  - Loss of libido [None]
  - Rhinorrhoea [None]
  - Nasal congestion [None]
